FAERS Safety Report 5068095-2 (Version None)
Quarter: 2006Q3

REPORT INFORMATION
  Report Type: 
  Country: None (occurrence: None)
  Receive Date: 20060731
  Receipt Date: 20060721
  Transmission Date: 20061208
  Serious: Yes (Other)
  Sender: FDA-Public Use
  Company Number: US-2006-019972

PATIENT
  Age: 56 Year
  Sex: Female

DRUGS (1)
  1. BETASERON [Suspect]
     Indication: MULTIPLE SCLEROSIS
     Dosage: 6 MIU, EVERY 2D, SUBCUTANEOUS
     Route: 058
     Dates: start: 20060721

REACTIONS (5)
  - ARTHRALGIA [None]
  - FALL [None]
  - HIP FRACTURE [None]
  - MASS [None]
  - MEDICAL DEVICE COMPLICATION [None]
